FAERS Safety Report 19444087 (Version 2)
Quarter: 2021Q3

REPORT INFORMATION
  Report Type: Spontaneous
  Country: JP (occurrence: JP)
  Receive Date: 20210621
  Receipt Date: 20210916
  Transmission Date: 20211014
  Serious: Yes (Death, Hospitalization)
  Sender: FDA-Public Use
  Company Number: JP-JNJFOC-20210626325

PATIENT
  Age: 66 Year
  Sex: Male

DRUGS (6)
  1. CLYSTER [Suspect]
     Active Substance: GLYCERIN\THYMOL
     Indication: CONSTIPATION
     Dosage: DOSE UNKNOWN
     Route: 048
  2. TRACLEER [Suspect]
     Active Substance: BOSENTAN
     Indication: PULMONARY HYPERTENSION
     Dosage: DOSE UNKNOWN, GRADUALLY INCREASED
     Route: 048
  3. BERAPROST SODIUM [Concomitant]
     Active Substance: BERAPROST SODIUM
     Dosage: DOSE UNKNOWN
     Route: 048
  4. TRACLEER [Suspect]
     Active Substance: BOSENTAN
     Indication: PULMONARY HYPERTENSION
     Route: 048
  5. TRACLEER [Suspect]
     Active Substance: BOSENTAN
     Indication: PULMONARY HYPERTENSION
     Route: 048
  6. TADALAFIL. [Concomitant]
     Active Substance: TADALAFIL
     Dosage: DOSE UNKNOWN
     Route: 048

REACTIONS (4)
  - Ileus [Fatal]
  - Glomerulonephritis rapidly progressive [Fatal]
  - Diarrhoea [Fatal]
  - Pneumonia [Fatal]
